FAERS Safety Report 11789187 (Version 1)
Quarter: 2015Q4

REPORT INFORMATION
  Report Type: Spontaneous
  Country: PL (occurrence: PL)
  Receive Date: 20151201
  Receipt Date: 20151201
  Transmission Date: 20160305
  Serious: Yes (Other)
  Sender: FDA-Public Use
  Company Number: PL-ASTELLAS-2015US044737

PATIENT
  Age: 88 Year
  Sex: Male

DRUGS (3)
  1. TARCEVA [Suspect]
     Active Substance: ERLOTINIB HYDROCHLORIDE
     Route: 065
  2. TARCEVA [Suspect]
     Active Substance: ERLOTINIB HYDROCHLORIDE
     Route: 065
  3. TARCEVA [Suspect]
     Active Substance: ERLOTINIB HYDROCHLORIDE
     Indication: LUNG ADENOCARCINOMA
     Route: 065
     Dates: start: 20140924

REACTIONS (9)
  - Rash papular [Recovering/Resolving]
  - Decreased appetite [Unknown]
  - Dermatitis acneiform [Recovering/Resolving]
  - Asthenia [Unknown]
  - Vascular rupture [Unknown]
  - Hepatotoxicity [Unknown]
  - Conjunctivitis [Recovering/Resolving]
  - General physical health deterioration [Unknown]
  - Pruritus [Unknown]
